FAERS Safety Report 17826560 (Version 1)
Quarter: 2020Q2

REPORT INFORMATION
  Report Type: Spontaneous
  Country: US (occurrence: US)
  Receive Date: 20200527
  Receipt Date: 20200527
  Transmission Date: 20200714
  Serious: No
  Sender: FDA-Public Use
  Company Number: US-CIPLA LTD.-2020US02353

PATIENT

DRUGS (3)
  1. METFORMIN [Concomitant]
     Active Substance: METFORMIN HYDROCHLORIDE
     Indication: DIABETES MELLITUS
     Dosage: 850 MILLIGRAM, TID
     Route: 065
  2. DICLOFENAC [Suspect]
     Active Substance: DICLOFENAC
     Indication: ONYCHOMYCOSIS
     Dosage: UNK, QID
     Route: 061
     Dates: start: 202003, end: 202003
  3. LISINOPRIL. [Concomitant]
     Active Substance: LISINOPRIL
     Indication: BLOOD PRESSURE ABNORMAL
     Dosage: 25 MILLIGRAM, QD
     Route: 065

REACTIONS (3)
  - Off label use [Unknown]
  - Burning sensation [Unknown]
  - Product use in unapproved indication [Unknown]

NARRATIVE: CASE EVENT DATE: 202003
